FAERS Safety Report 6093199-5 (Version None)
Quarter: 2009Q1

REPORT INFORMATION
  Report Type: 
  Country: None (occurrence: None)
  Receive Date: 20090226
  Receipt Date: 20081126
  Transmission Date: 20090719
  Serious: Yes (Life-Threatening, Other)
  Sender: FDA-Public Use
  Company Number: JP-PFIZER INC-2008068215

PATIENT

DRUGS (17)
  1. CAMPTOSAR [Suspect]
     Indication: RECTAL CANCER
     Dosage: 240 MG (139.5 MG/M2)
     Route: 042
     Dates: start: 20080526, end: 20080709
  2. FLUOROURACIL [Suspect]
     Indication: RECTAL CANCER
     Dosage: 700 MG (407MG/M2) IN BOLUS, 4000 MG D1-2 (2325.6MG/M2/D1-2) AS CONTINUOUS INFUSION
     Route: 042
     Dates: start: 20080526, end: 20080709
  3. AVASTIN [Suspect]
     Indication: RECTAL CANCER
     Dosage: 300 MG
     Route: 042
     Dates: start: 20080526, end: 20080709
  4. CALCIUM LEVOFOLINATE [Suspect]
     Indication: RECTAL CANCER
     Dosage: 325 MG (189 MG/M2)
     Route: 042
     Dates: start: 20080526, end: 20080709
  5. KYTRIL [Concomitant]
     Indication: PREMEDICATION
     Dosage: 1 DF, UNK
     Route: 042
     Dates: start: 20080526, end: 20080709
  6. DEXAMETHASONE [Concomitant]
     Indication: PREMEDICATION
     Dosage: 4 DF, UNK
     Route: 048
     Dates: start: 20080526, end: 20080709
  7. OXYCONTIN [Concomitant]
     Route: 048
  8. OXINORM [Concomitant]
     Route: 048
  9. VOLTAREN [Concomitant]
     Route: 048
  10. SELBEX [Concomitant]
     Route: 048
  11. FERROMIA [Concomitant]
     Route: 048
  12. GABAPENTIN [Concomitant]
     Route: 048
  13. DEPAKENE [Concomitant]
     Route: 048
  14. MAGNESIUM OXIDE [Concomitant]
     Route: 048
  15. CEFAZOLIN SODIUM [Concomitant]
     Indication: INFECTION
     Dosage: 1 G
     Route: 042
     Dates: start: 20080711, end: 20080712
  16. PAZUCROSS [Concomitant]
     Indication: INFECTION
     Dosage: 500 MG, 2X/DAY
     Route: 042
     Dates: start: 20080713, end: 20080716
  17. MEROPEN [Concomitant]
     Indication: INFECTION
     Dosage: 0.5 MG, 3X/DAY
     Route: 042
     Dates: start: 20080717, end: 20080807

REACTIONS (4)
  - HAEMOGLOBIN DECREASED [None]
  - LEUKOPENIA [None]
  - NECROTISING FASCIITIS [None]
  - NEUTROPENIA [None]
